FAERS Safety Report 10250612 (Version 3)
Quarter: 2015Q2

REPORT INFORMATION
  Report Type: Spontaneous
  Country: US (occurrence: US)
  Receive Date: 20140620
  Receipt Date: 20150519
  Transmission Date: 20150821
  Serious: Yes (Hospitalization, Other)
  Sender: FDA-Public Use
  Company Number: US-GLAXOSMITHKLINE-A1077796A

PATIENT
  Age: 72 Year
  Sex: Male

DRUGS (2)
  1. SORIATANE [Suspect]
     Active Substance: ACITRETIN
     Indication: KERATOSIS FOLLICULAR
     Dosage: UNKNOWN DOSING
     Route: 065
     Dates: start: 2004
  2. SORIATANE [Suspect]
     Active Substance: ACITRETIN
     Indication: SKIN DISORDER

REACTIONS (5)
  - Malaise [Unknown]
  - Gallbladder operation [Unknown]
  - Nasopharyngitis [Recovering/Resolving]
  - Eye disorder [Recovering/Resolving]
  - Rhinorrhoea [Recovering/Resolving]

NARRATIVE: CASE EVENT DATE: 201405
